FAERS Safety Report 5030945-3 (Version None)
Quarter: 2006Q2

REPORT INFORMATION
  Report Type: 
  Country: None (occurrence: None)
  Receive Date: 20060615
  Receipt Date: 20060529
  Transmission Date: 20061013
  Serious: Yes (Other)
  Sender: FDA-Public Use
  Company Number: 2006BH010576

PATIENT
  Age: 43 Year
  Sex: Male

DRUGS (4)
  1. VANCOMYCIN [Suspect]
     Indication: WOUND INFECTION STAPHYLOCOCCAL
     Dosage: 1 GM; 2X A DAY; IV
     Route: 042
  2. CHLORPHENIRAMINE MALEATE [Concomitant]
  3. MALEATE [Concomitant]
  4. RANITIDINE [Concomitant]

REACTIONS (1)
  - DRUG HYPERSENSITIVITY [None]
